FAERS Safety Report 6196409-9 (Version None)
Quarter: 2009Q2

REPORT INFORMATION
  Report Type: 
  Country: None (occurrence: None)
  Receive Date: 20090518
  Receipt Date: 20090505
  Transmission Date: 20091009
  Serious: Yes (Hospitalization, Other)
  Sender: FDA-Public Use
  Company Number: PAR_02971_2009

PATIENT
  Age: 5 Year
  Sex: Female
  Weight: 19.4 kg

DRUGS (3)
  1. IBUPROFEN [Suspect]
     Indication: HYPERPYREXIA
     Dosage: (5 MG/KG 1X/8 HOURS ORAL)
     Route: 048
  2. ACETAMINOPHEN [Suspect]
     Indication: HYPERPYREXIA
     Dosage: (11 MG/KG 2X/5 HOURS ORAL)
     Route: 048
  3. DIAZEPAM [Concomitant]

REACTIONS (12)
  - ACUTE HEPATIC FAILURE [None]
  - BLOOD FIBRINOGEN INCREASED [None]
  - BLOOD IMMUNOGLOBULIN G INCREASED [None]
  - BLOOD SODIUM DECREASED [None]
  - DRUG TOXICITY [None]
  - ELECTROCARDIOGRAM ABNORMAL [None]
  - FIBRIN D DIMER INCREASED [None]
  - HYPERTENSION [None]
  - KIDNEY ENLARGEMENT [None]
  - PLATELET COUNT INCREASED [None]
  - RENAL FAILURE ACUTE [None]
  - URINE KETONE BODY PRESENT [None]
